APPROVED DRUG PRODUCT: OXYTOCIN
Active Ingredient: OXYTOCIN
Strength: 10USP UNITS/ML (10USP UNITS/ML)
Dosage Form/Route: INJECTABLE;INJECTION
Application: A077453 | Product #001
Applicant: DR REDDYS LABORATORIES LTD
Approved: Jan 24, 2008 | RLD: No | RS: No | Type: DISCN